FAERS Safety Report 5902680-8 (Version None)
Quarter: 2008Q3

REPORT INFORMATION
  Report Type: 
  Country: None (occurrence: None)
  Receive Date: 20080929
  Receipt Date: 20080929
  Transmission Date: 20090109
  Serious: No
  Sender: FDA-Public Use
  Company Number: None

PATIENT
  Age: 70 Year
  Sex: Male
  Weight: 233 kg

DRUGS (14)
  1. CEFAZOLIN [Suspect]
     Indication: POSTOPERATIVE CARE
     Dosage: 1GM Q8H IV
     Route: 042
     Dates: start: 20080923, end: 20080925
  2. CEFAZOLIN [Suspect]
     Indication: PROPHYLAXIS
     Dosage: 1GM Q8H IV
     Route: 042
     Dates: start: 20080923, end: 20080925
  3. DECADRON [Concomitant]
  4. MEPERIDINE HCL [Concomitant]
  5. PROMETHAZINE [Concomitant]
  6. MORPHINE [Concomitant]
  7. VICODIN [Concomitant]
  8. GENTAMICIN [Concomitant]
  9. KLONOPIN [Concomitant]
  10. INDERAL [Concomitant]
  11. SINEMET [Concomitant]
  12. VYTORIN [Concomitant]
  13. ZESTRIL [Concomitant]
  14. MIRAPAX [Concomitant]

REACTIONS (3)
  - CONFUSIONAL STATE [None]
  - COORDINATION ABNORMAL [None]
  - RASH [None]
